FAERS Safety Report 22124158 (Version 1)
Quarter: 2023Q1

REPORT INFORMATION
  Report Type: Spontaneous
  Country: CA (occurrence: CA)
  Receive Date: 20230322
  Receipt Date: 20230322
  Transmission Date: 20230418
  Serious: Yes (Other)
  Sender: FDA-Public Use
  Company Number: CA-JNJFOC-20230342757

PATIENT

DRUGS (2)
  1. IBUPROFEN [Suspect]
     Active Substance: IBUPROFEN
     Indication: Patent ductus arteriosus
     Dosage: DOSES ADMINISTERED ORALLY/INTRAVENOUS EVERY 24 H AS 10 MG/KG FOR THE FIRST DOSE, FOLLOWED BY 5 MG/KG
     Route: 065
  2. ACETAMINOPHEN [Suspect]
     Active Substance: ACETAMINOPHEN
     Indication: Patent ductus arteriosus
     Dosage: 28 DOSES ADMINISTERED ORALLY/INTRAVENOUS/PER RECTAL AS 15 MG/KG/DOSE EVERY 6 H FOR 7 DAYS
     Route: 065

REACTIONS (5)
  - Intestinal perforation [Unknown]
  - Thrombocytopenia [Unknown]
  - Nephropathy toxic [Unknown]
  - Off label use [Unknown]
  - Therapeutic response unexpected [Unknown]
